FAERS Safety Report 7326199-5 (Version None)
Quarter: 2011Q1

REPORT INFORMATION
  Report Type: 
  Country: None (occurrence: None)
  Receive Date: 20110302
  Receipt Date: 20110217
  Transmission Date: 20110831
  Serious: Yes (Other)
  Sender: FDA-Public Use
  Company Number: JP-ELI_LILLY_AND_COMPANY-JP201101005170

PATIENT
  Age: 39 Year
  Sex: Female
  Weight: 44.9 kg

DRUGS (10)
  1. ZYPREXA [Suspect]
     Dosage: 10 MG, DAILY (1/D)
     Route: 048
     Dates: start: 20110112, end: 20110117
  2. LIMAS [Concomitant]
     Indication: BIPOLAR I DISORDER
     Dosage: 300 MG, DAILY (1/D)
     Route: 048
     Dates: start: 20110111, end: 20110117
  3. ZYPREXA [Suspect]
     Indication: BIPOLAR I DISORDER
     Dosage: 5 MG, DAILY (1/D)
     Route: 048
     Dates: start: 20110111, end: 20110112
  4. LIMAS [Concomitant]
     Dosage: 500 MG, DAILY (1/D)
     Route: 048
     Dates: start: 20110118, end: 20110120
  5. LIMAS [Concomitant]
     Dosage: 800 MG, DAILY (1/D)
     Route: 048
     Dates: start: 20110125
  6. LIMAS [Concomitant]
     Dosage: 600 MG, DAILY (1/D)
     Route: 048
     Dates: start: 20110121, end: 20110124
  7. LEVOTOMIN [Concomitant]
     Indication: BIPOLAR I DISORDER
     Dosage: 50 MG, DAILY (1/D)
     Route: 048
     Dates: start: 20110112, end: 20110118
  8. MYSLEE [Concomitant]
     Indication: INSOMNIA
     Dosage: 10 MG, DAILY (1/D)
     Route: 048
     Dates: start: 20110111
  9. SILECE [Concomitant]
     Indication: INSOMNIA
     Dosage: 1 MG, DAILY (1/D)
     Route: 048
     Dates: start: 20110111
  10. ZYPREXA [Suspect]
     Dosage: 15 MG, DAILY (1/D)
     Route: 048
     Dates: start: 20110117, end: 20110118

REACTIONS (2)
  - AGRANULOCYTOSIS [None]
  - PYREXIA [None]
